FAERS Safety Report 13299739 (Version 2)
Quarter: 2017Q1

REPORT INFORMATION
  Report Type: Spontaneous
  Country: JP (occurrence: JP)
  Receive Date: 20170306
  Receipt Date: 20170321
  Transmission Date: 20170428
  Serious: No
  Sender: FDA-Public Use
  Company Number: JP-009507513-1702JPN002115J

PATIENT
  Age: 69 Year
  Sex: Male
  Weight: 72 kg

DRUGS (2)
  1. ERELSA TABLETS 50MG [Suspect]
     Active Substance: ELBASVIR
     Indication: CHRONIC HEPATITIS C
     Dosage: 50 MG, QD
     Route: 048
     Dates: start: 20170130
  2. GRAZYNA TABLETS 50MG [Suspect]
     Active Substance: GRAZOPREVIR
     Indication: CHRONIC HEPATITIS C
     Dosage: 100 MG, QD
     Route: 048
     Dates: start: 20170130

REACTIONS (1)
  - Renal disorder [Recovering/Resolving]

NARRATIVE: CASE EVENT DATE: 20170206
